FAERS Safety Report 8862238 (Version 2)
Quarter: 2012Q4

REPORT INFORMATION
  Report Type: 
  Country: DE (occurrence: DE)
  Receive Date: 20121026
  Receipt Date: 20121105
  Transmission Date: 20130627
  Serious: Yes (Hospitalization, Other)
  Sender: FDA-Public Use
  Company Number: DE-JNJFOC-20121012106

PATIENT
  Age: 67 Year
  Sex: Male
  Weight: 90 kg

DRUGS (12)
  1. XARELTO [Suspect]
     Indication: PRODUCT USED FOR UNKNOWN INDICATION
     Route: 048
  2. FALITHROM [Interacting]
     Indication: PRODUCT USED FOR UNKNOWN INDICATION
     Route: 065
  3. TORASEMID [Concomitant]
     Dosage: 10 units unspecified
     Route: 065
  4. MYOSON [Concomitant]
     Indication: MYALGIA
     Route: 065
  5. METOHEXAL SUCC [Concomitant]
     Route: 065
  6. LAMOTRIGIN [Concomitant]
     Dosage: 100 units not reported
     Route: 065
  7. TARGIN [Concomitant]
     Route: 065
  8. KATADOLON [Concomitant]
     Route: 065
  9. CEFUHEXAL [Concomitant]
     Dosage: 500 units not reported
     Route: 065
  10. ALLOPURINOL [Concomitant]
     Dosage: 100 units not reported
     Route: 065
  11. ACERBON [Concomitant]
  12. AMLODIPINE [Concomitant]
     Route: 065

REACTIONS (2)
  - Haemorrhage intracranial [Recovering/Resolving]
  - Drug interaction [Unknown]
